FAERS Safety Report 13743341 (Version 3)
Quarter: 2017Q3

REPORT INFORMATION
  Report Type: Spontaneous
  Country: JP (occurrence: JP)
  Receive Date: 20170711
  Receipt Date: 20170802
  Transmission Date: 20171127
  Serious: Yes (Hospitalization)
  Sender: FDA-Public Use
  Company Number: JP-SHIONOGI, INC-2017000510

PATIENT
  Age: 44 Year
  Sex: Female
  Weight: 45 kg

DRUGS (5)
  1. MAGNESIUM OXIDE. [Concomitant]
     Active Substance: MAGNESIUM OXIDE
     Indication: CONSTIPATION
     Dosage: 500 MG, PRN
     Route: 048
  2. FENTOS [Concomitant]
     Active Substance: FENTANYL
     Indication: CANCER PAIN
     Dosage: 1 MG, QD
     Route: 062
     Dates: start: 20170123
  3. OXYCONTIN [Concomitant]
     Active Substance: OXYCODONE HYDROCHLORIDE
     Indication: CANCER PAIN
     Dosage: 10 MG, TID
     Route: 048
     Dates: start: 20170208
  4. SYMPROIC [Suspect]
     Active Substance: NALDEMEDINE
     Indication: CONSTIPATION
     Dosage: 0.2 MG, QD
     Route: 048
     Dates: start: 20170703, end: 20170703
  5. TULOBUTEROL [Concomitant]
     Active Substance: TULOBUTEROL
     Indication: METASTASES TO LUNG
     Dosage: 2 MG, QD
     Route: 062
     Dates: start: 20170426

REACTIONS (4)
  - Diarrhoea [Recovering/Resolving]
  - Anaphylactic shock [Recovering/Resolving]
  - Abdominal pain lower [Unknown]
  - Dehydration [Recovering/Resolving]

NARRATIVE: CASE EVENT DATE: 20170703
